FAERS Safety Report 5976003-2 (Version None)
Quarter: 2008Q4

REPORT INFORMATION
  Report Type: 
  Country: None (occurrence: None)
  Receive Date: 20081202
  Receipt Date: 20081125
  Transmission Date: 20090506
  Serious: Yes (Hospitalization)
  Sender: FDA-Public Use
  Company Number: PHHY2008CY29573

PATIENT
  Age: 51 Year
  Sex: Female
  Weight: 65 kg

DRUGS (8)
  1. ACLASTA [Suspect]
     Dosage: UNK
     Route: 042
     Dates: start: 20081117
  2. PREDNISOLONE [Suspect]
  3. CALCIUM [Suspect]
  4. VITAMIN B COMPLEX CAP [Suspect]
  5. VITAMIN D [Suspect]
  6. PLAQUENIL [Suspect]
  7. JOINTCARE [Suspect]
  8. SALAZOPYRINE [Suspect]

REACTIONS (7)
  - ANXIETY [None]
  - DIZZINESS [None]
  - DYSPNOEA [None]
  - HYPOTENSION [None]
  - NAUSEA [None]
  - SYNCOPE [None]
  - VOMITING [None]
